FAERS Safety Report 21676769 (Version 3)
Quarter: 2023Q1

REPORT INFORMATION
  Report Type: Report from Study
  Country: US (occurrence: US)
  Receive Date: 20221202
  Receipt Date: 20230306
  Transmission Date: 20230417
  Serious: No
  Sender: FDA-Public Use
  Company Number: US-002147023-NVSC2022US280433

PATIENT
  Sex: Female

DRUGS (1)
  1. COSENTYX [Suspect]
     Active Substance: SECUKINUMAB
     Indication: Psoriasis
     Dosage: 300 MG, QMO (CURRENTLY ON THE LOADING DOSE SO 300 MG FOR 5 WEEKS ON 28 OCT 2022))
     Route: 058
     Dates: start: 202210

REACTIONS (3)
  - Tooth infection [Unknown]
  - Malaise [Unknown]
  - Psoriasis [Unknown]
